FAERS Safety Report 9733236 (Version 2)
Quarter: 2014Q1

REPORT INFORMATION
  Report Type: Spontaneous
  Country: US (occurrence: US)
  Receive Date: 20131205
  Receipt Date: 20140116
  Transmission Date: 20141002
  Serious: No
  Sender: FDA-Public Use
  Company Number: US-PFIZER INC-2013346609

PATIENT
  Sex: Female

DRUGS (5)
  1. EFFEXOR XR [Suspect]
     Dosage: 225 MG, 1X/DAY (3 X 75 MG EVERY AM)
     Route: 048
  2. EFFEXOR XR [Suspect]
     Dosage: 75 MG, 2X/DAY
     Route: 048
  3. EFFEXOR XR [Suspect]
     Dosage: 75 MG, 3X/DAY
     Route: 048
  4. EFFEXOR XR [Suspect]
     Dosage: 225 MG, 1X/DAY (3 X 75 MG EVERY AM)
  5. FENTANYL PATCH [Concomitant]
     Dosage: UNK
     Route: 062

REACTIONS (3)
  - Depression [Unknown]
  - Sedation [Unknown]
  - Anxiety [Unknown]
